FAERS Safety Report 5762825-X (Version None)
Quarter: 2008Q2

REPORT INFORMATION
  Report Type: 
  Country: None (occurrence: None)
  Receive Date: 20080609
  Receipt Date: 20080605
  Transmission Date: 20081010
  Serious: Yes (Hospitalization)
  Sender: FDA-Public Use
  Company Number: US-BRISTOL-MYERS SQUIBB COMPANY-14217723

PATIENT
  Age: 49 Year
  Sex: Male
  Weight: 132 kg

DRUGS (3)
  1. ABILIFY [Suspect]
     Indication: BIPOLAR DISORDER
     Dates: start: 20070401, end: 20071020
  2. PLACEBO [Suspect]
     Indication: BIPOLAR DISORDER
     Dates: start: 20070401, end: 20071020
  3. ADVIL [Concomitant]
     Dosage: APPROXIMATELY ONCE EVERY 2 WEEKS

REACTIONS (1)
  - RENAL FAILURE [None]
